FAERS Safety Report 18275472 (Version 1)
Quarter: 2020Q3

REPORT INFORMATION
  Report Type: Other
  Country: US (occurrence: US)
  Receive Date: 20200916
  Receipt Date: 20200916
  Transmission Date: 20201103
  Serious: No
  Sender: FDA-Public Use
  Company Number: US-LEADIANT BIOSCIENCES INC-2020STPI000283

PATIENT
  Sex: Female

DRUGS (4)
  1. MATULANE [Suspect]
     Active Substance: PROCARBAZINE HYDROCHLORIDE
     Indication: LYMPHOMA
     Dosage: 50 MG, 2 CAPSULES QD ON DAYS 2?11 OF EACH 14 DAY CHEMOTHERAPY CYCLE
     Dates: start: 20191217
  2. ONDANSETRON [Concomitant]
     Active Substance: ONDANSETRON
  3. CITALOPRAM [Concomitant]
     Active Substance: CITALOPRAM HYDROBROMIDE
  4. BUPROPION. [Concomitant]
     Active Substance: BUPROPION

REACTIONS (2)
  - Illness [Unknown]
  - Vomiting [Unknown]
